FAERS Safety Report 10751665 (Version 1)
Quarter: 2015Q1

REPORT INFORMATION
  Report Type: Spontaneous
  Country: MY (occurrence: None)
  Receive Date: 20150128
  Receipt Date: 20150128
  Transmission Date: 20150721
  Serious: Yes (Other)
  Sender: FDA-Public Use
  Company Number: FK201500386

PATIENT
  Age: 61 Year
  Sex: Female
  Weight: 62 kg

DRUGS (3)
  1. OXALIPLATIN 5MG/ML CONCENTRATE FOR SOLUTION FOR INFUSION (OXALIPLATIN) (OXALIPLATIN) [Suspect]
     Active Substance: OXALIPLATIN
     Indication: RECTOSIGMOID CANCER
     Dosage: 200 MG, OVER 2 HOURS
     Dates: start: 20150105
  2. BEVACIZUMAB [Concomitant]
     Active Substance: BEVACIZUMAB
  3. CAPECITABINE. [Concomitant]
     Active Substance: CAPECITABINE

REACTIONS (3)
  - Ocular hyperaemia [None]
  - Cold sweat [None]
  - Pruritus [None]

NARRATIVE: CASE EVENT DATE: 20150105
